FAERS Safety Report 19299418 (Version 1)
Quarter: 2021Q2

REPORT INFORMATION
  Report Type: Spontaneous
  Country: TR (occurrence: TR)
  Receive Date: 20210524
  Receipt Date: 20210524
  Transmission Date: 20210717
  Serious: Yes (Other)
  Sender: FDA-Public Use
  Company Number: NVSC2021TR106513

PATIENT
  Age: 32 Year
  Sex: Female

DRUGS (1)
  1. VOLTAREN [Suspect]
     Active Substance: DICLOFENAC SODIUM
     Indication: ANALGESIC THERAPY
     Dosage: UNK
     Route: 065

REACTIONS (3)
  - Insomnia [Unknown]
  - Nasopharyngitis [Unknown]
  - Malaria [Recovered/Resolved]
